FAERS Safety Report 9564861 (Version 1)
Quarter: 2013Q3

REPORT INFORMATION
  Report Type: Spontaneous
  Country: GB (occurrence: GB)
  Receive Date: 20130930
  Receipt Date: 20130930
  Transmission Date: 20140515
  Serious: Yes (Other)
  Sender: FDA-Public Use
  Company Number: GB-JNJFOC-20130914963

PATIENT
  Age: 47 Year
  Sex: Female

DRUGS (1)
  1. CLADRIBINE [Suspect]
     Indication: LANGERHANS^ CELL HISTIOCYTOSIS
     Dosage: FOR 5 DAYS EVERY MONTH, FOR UP TO 6 CYCLES
     Route: 058

REACTIONS (6)
  - Thrombocytopenia [Recovering/Resolving]
  - Neutropenia [Recovering/Resolving]
  - Blood product transfusion dependent [Recovering/Resolving]
  - Lymphopenia [Not Recovered/Not Resolved]
  - Incorrect route of drug administration [Unknown]
  - Drug intolerance [Unknown]
